FAERS Safety Report 20477015 (Version 3)
Quarter: 2023Q1

REPORT INFORMATION
  Report Type: Spontaneous
  Country: US (occurrence: US)
  Receive Date: 20220215
  Receipt Date: 20230317
  Transmission Date: 20230417
  Serious: Yes (Other)
  Sender: FDA-Public Use
  Company Number: US-SA-SAC20220208000454

PATIENT
  Age: 58 Year
  Sex: Female

DRUGS (1)
  1. DUPIXENT [Suspect]
     Active Substance: DUPILUMAB
     Indication: Dermatitis atopic
     Dosage: 300 MG, OTHER
     Route: 058
     Dates: start: 20210223, end: 202303

REACTIONS (1)
  - Eye haemorrhage [Unknown]

NARRATIVE: CASE EVENT DATE: 20230301
